FAERS Safety Report 9465874 (Version 2)
Quarter: 2013Q3

REPORT INFORMATION
  Report Type: Spontaneous
  Country: US (occurrence: US)
  Receive Date: 20130820
  Receipt Date: 20130904
  Transmission Date: 20140515
  Serious: Yes (Hospitalization)
  Sender: FDA-Public Use
  Company Number: US-JNJFOC-20130807276

PATIENT
  Sex: Male
  Weight: 76.66 kg

DRUGS (1)
  1. NUCYNTA ER [Suspect]
     Indication: HEADACHE
     Dosage: 50 MG AS NEEDED TWICE DAILY (STARTED END OF JUN AND BEGINING OF JUL-2013)
     Route: 048
     Dates: start: 2013, end: 2013

REACTIONS (5)
  - Retching [Recovered/Resolved]
  - Vomiting [Recovered/Resolved]
  - Weight decreased [Not Recovered/Not Resolved]
  - Blood magnesium decreased [Recovered/Resolved]
  - Headache [Recovered/Resolved]
